FAERS Safety Report 10247267 (Version 1)
Quarter: 2014Q1

REPORT INFORMATION
  Report Type: Spontaneous
  Country: US (occurrence: None)
  Receive Date: 20140306
  Receipt Date: 20140306
  Transmission Date: 20141002
  Serious: Yes (Hospitalization)
  Sender: FDA-Public Use
  Company Number: 163-21880-13031309

PATIENT
  Age: 37 Year
  Sex: Male
  Weight: 69.85 kg

DRUGS (11)
  1. REVLIMID (LENALIDOMIDE) (10 MILLIGRAM, CAPSULES) [Suspect]
     Indication: ACUTE MYELOID LEUKAEMIA
     Route: 048
     Dates: start: 20121204
  2. REVLIMID (LENALIDOMIDE) (10 MILLIGRAM, CAPSULES) [Suspect]
     Indication: MYELODYSPLASTIC SYNDROME
     Route: 048
     Dates: start: 20121204
  3. ACYCLOVIR (ACICLOVIR) (CAPSULES) [Concomitant]
  4. AMITRIPTYLINE HCL (AMITRIPTYLINE HYDROCHLORIDE) (UNKNOWN) [Concomitant]
  5. AZITHROMYCIN (UNKNOWN) [Concomitant]
  6. BARACLUDE (ENTECAVIR) (TABLETS) [Concomitant]
  7. CARVEDIOLOL (UNKNOWN) [Concomitant]
  8. LEVOFLOXACIN (UNKNOWN) [Concomitant]
  9. VORICONAZOLE (UNKNOWN) [Concomitant]
  10. DIGOXIN (TABLETS) [Concomitant]
  11. POTASSIUM CHLORIDE (UNKNOWN) [Concomitant]

REACTIONS (1)
  - Pneumonia [None]
